FAERS Safety Report 7254790-3 (Version None)
Quarter: 2011Q1

REPORT INFORMATION
  Report Type: 
  Country: None (occurrence: None)
  Receive Date: 20110129
  Receipt Date: 20100301
  Transmission Date: 20110831
  Serious: No
  Sender: FDA-Public Use
  Company Number: US-ABBOTT-10P-163-0629170-00

PATIENT
  Sex: Female
  Weight: 108.51 kg

DRUGS (3)
  1. HUMIRA [Suspect]
     Indication: RHEUMATOID ARTHRITIS
     Route: 058
     Dates: start: 20091001
  2. ULTRAM [Concomitant]
     Indication: PAIN
     Dosage: ONCE OR TWICE A DAY
  3. LISINOPRIL [Concomitant]
     Indication: HYPERTENSION

REACTIONS (3)
  - JOINT CREPITATION [None]
  - ARTHRALGIA [None]
  - MOBILITY DECREASED [None]
